FAERS Safety Report 23680500 (Version 2)
Quarter: 2025Q1

REPORT INFORMATION
  Report Type: Report from Study
  Country: US (occurrence: US)
  Receive Date: 20240328
  Receipt Date: 20250221
  Transmission Date: 20250409
  Serious: No
  Sender: TAKEDA
  Company Number: US-TAKEDA-US201921935

PATIENT
  Sex: Female
  Weight: 101.67 kg

DRUGS (3)
  1. HUMAN IMMUNOGLOBULIN G [Suspect]
     Active Substance: HUMAN IMMUNOGLOBULIN G
     Indication: Primary immunodeficiency syndrome
  2. HUMAN IMMUNOGLOBULIN G [Suspect]
     Active Substance: HUMAN IMMUNOGLOBULIN G
     Indication: Hypergammaglobulinaemia
     Dosage: 10 GRAM, 1/WEEK
  3. HUMAN IMMUNOGLOBULIN G [Suspect]
     Active Substance: HUMAN IMMUNOGLOBULIN G
     Indication: Immune system disorder

REACTIONS (8)
  - Infusion site scar [Unknown]
  - Product use issue [Unknown]
  - Insurance issue [Unknown]
  - Thyroid disorder [Unknown]
  - Weight decreased [Unknown]
  - Blood pressure abnormal [Recovering/Resolving]
  - Blood pressure increased [Unknown]
  - Fatigue [Unknown]
